FAERS Safety Report 20753177 (Version 1)
Quarter: 2022Q2

REPORT INFORMATION
  Report Type: Spontaneous
  Country: US (occurrence: None)
  Receive Date: 20220426
  Receipt Date: 20220426
  Transmission Date: 20220721
  Serious: No
  Sender: FDA-Public Use
  Company Number: US-ROCHE-3014422

PATIENT
  Sex: Female

DRUGS (2)
  1. ESBRIET [Suspect]
     Active Substance: PIRFENIDONE
     Indication: Idiopathic pulmonary fibrosis
     Dosage: 801 MG THREE TIMES DAILY
     Route: 048
     Dates: start: 20220111, end: 20220127
  2. ESBRIET [Suspect]
     Active Substance: PIRFENIDONE
     Dosage: TAKE 3 PILLS 3 TIMES A DAY
     Route: 048
     Dates: end: 20220208

REACTIONS (4)
  - Abdominal discomfort [Unknown]
  - Depression [Unknown]
  - Decreased appetite [Recovered/Resolved]
  - Gastric disorder [Recovered/Resolved]
